FAERS Safety Report 6377717-5 (Version None)
Quarter: 2009Q3

REPORT INFORMATION
  Report Type: 
  Country: None (occurrence: None)
  Receive Date: 20090925
  Receipt Date: 20090922
  Transmission Date: 20100115
  Serious: Yes (Death, Hospitalization)
  Sender: FDA-Public Use
  Company Number: US-CELGENEUS-163-20785-09080334

PATIENT
  Sex: Male

DRUGS (4)
  1. THALOMID [Suspect]
     Route: 048
     Dates: start: 20080401, end: 20090301
  2. THALOMID [Suspect]
     Route: 048
     Dates: start: 20070401
  3. THALOMID [Suspect]
     Route: 048
     Dates: start: 20070201
  4. LORTAB [Concomitant]
     Indication: DRUG USE FOR UNKNOWN INDICATION
     Route: 065

REACTIONS (2)
  - HYDRONEPHROSIS [None]
  - NEOPLASM PROGRESSION [None]
